FAERS Safety Report 24825443 (Version 2)
Quarter: 2025Q1

REPORT INFORMATION
  Report Type: Spontaneous
  Country: KR (occurrence: KR)
  Receive Date: 20250109
  Receipt Date: 20250120
  Transmission Date: 20250409
  Serious: Yes (Hospitalization)
  Sender: SAMSUNG BIOEPIS
  Company Number: KR-SAMSUNG BIOEPIS-SB-2025-00390

PATIENT
  Age: 67 Year
  Sex: Female
  Weight: 49.5 kg

DRUGS (14)
  1. TRASTUZUMAB [Suspect]
     Active Substance: TRASTUZUMAB
     Indication: Gallbladder cancer
     Route: 042
     Dates: start: 20241224, end: 20241231
  2. NIVOLUMAB [Suspect]
     Active Substance: NIVOLUMAB
     Indication: Gallbladder cancer
     Route: 042
     Dates: start: 20241224, end: 20241231
  3. GEMCITABINE [Suspect]
     Active Substance: GEMCITABINE
     Indication: Gallbladder cancer
     Route: 042
     Dates: start: 20241224, end: 20241231
  4. CISPLATIN [Suspect]
     Active Substance: CISPLATIN
     Indication: Gallbladder cancer
     Route: 042
     Dates: start: 20241224, end: 20241231
  5. CIPROFLOXACIN [Concomitant]
     Active Substance: CIPROFLOXACIN
     Indication: Product used for unknown indication
     Dosage: 100ML (BOTTLE);
     Route: 042
     Dates: start: 20241224, end: 20241231
  6. URSODIOL [Concomitant]
     Active Substance: URSODIOL
     Indication: Product used for unknown indication
     Route: 048
     Dates: start: 20241223
  7. Dong A Gaster [Concomitant]
     Indication: Product used for unknown indication
     Route: 042
     Dates: start: 20241224
  8. GODEX [ADENINE HYDROCHLORIDE;BIFENDATE;CARNITINE OROTATE;CYANOCOBALAMI [Concomitant]
     Indication: Product used for unknown indication
     Dosage: 1CAP
     Route: 048
     Dates: start: 20241223
  9. DIETARY SUPPLEMENT\HERBALS\MILK THISTLE [Concomitant]
     Active Substance: MILK THISTLE
     Indication: Product used for unknown indication
     Route: 048
     Dates: start: 20241223
  10. PROPACETAMOL HYDROCHLORIDE [Concomitant]
     Active Substance: PROPACETAMOL HYDROCHLORIDE
     Indication: Product used for unknown indication
     Route: 042
     Dates: start: 20241224
  11. TRISONKIT [Concomitant]
     Indication: Product used for unknown indication
     Route: 042
     Dates: start: 20241224
  12. PENIRAMIN [Concomitant]
     Indication: Product used for unknown indication
     Route: 042
     Dates: start: 20241224
  13. Dulackhan [Concomitant]
     Indication: Product used for unknown indication
     Dosage: 15ML (PACK)
     Route: 048
     Dates: start: 20241230
  14. NALOXONE HYDROCHLORIDE\OXYCODONE HYDROCHLORIDE [Concomitant]
     Active Substance: NALOXONE HYDROCHLORIDE\OXYCODONE HYDROCHLORIDE
     Indication: Product used for unknown indication
     Dosage: TARGIN PR TABLET 20/10MG ;
     Dates: start: 20241226

REACTIONS (2)
  - Pyrexia [Recovered/Resolved]
  - Off label use [Unknown]

NARRATIVE: CASE EVENT DATE: 20241231
